FAERS Safety Report 6557737-8 (Version None)
Quarter: 2010Q1

REPORT INFORMATION
  Report Type: 
  Country: None (occurrence: None)
  Receive Date: 20100129
  Receipt Date: 20100126
  Transmission Date: 20100710
  Serious: Yes (Other)
  Sender: FDA-Public Use
  Company Number: US-SANOFI-AVENTIS-2009SA010806

PATIENT
  Age: 73 Year
  Sex: Female
  Weight: 80.74 kg

DRUGS (13)
  1. PLAVIX [Suspect]
     Route: 048
     Dates: start: 20091206, end: 20091222
  2. WARFARIN SODIUM [Suspect]
     Indication: AORTIC VALVE REPLACEMENT
     Route: 048
     Dates: start: 19930101, end: 20091222
  3. ASPIRIN [Suspect]
     Indication: AORTIC VALVE REPLACEMENT
     Route: 048
     Dates: start: 19930101, end: 20091222
  4. METOPROLOL [Concomitant]
     Indication: BLOOD PRESSURE
     Route: 048
  5. NORVASC [Concomitant]
     Indication: BLOOD PRESSURE
     Route: 048
  6. HYDROCHLOROTHIAZIDE [Concomitant]
     Route: 048
  7. LISINOPRIL [Concomitant]
     Route: 048
  8. ISOSORBIDE [Concomitant]
     Indication: ANGINA PECTORIS
     Route: 048
  9. CLARITIN [Concomitant]
  10. LEVOTHYROXINE SODIUM [Concomitant]
     Indication: THYROID DISORDER
     Route: 048
  11. CRESTOR [Concomitant]
  12. MULTI-VITAMINS [Concomitant]
     Route: 048
  13. TRAMADOL [Concomitant]
     Route: 048

REACTIONS (5)
  - DIZZINESS [None]
  - GINGIVAL BLEEDING [None]
  - HAEMOGLOBIN DECREASED [None]
  - INTERNATIONAL NORMALISED RATIO INCREASED [None]
  - OCCULT BLOOD POSITIVE [None]
